FAERS Safety Report 8940548 (Version 2)
Quarter: 2012Q4

REPORT INFORMATION
  Report Type: 
  Country: GB (occurrence: GB)
  Receive Date: 20121203
  Receipt Date: 20121218
  Transmission Date: 20130627
  Serious: Yes (Other)
  Sender: FDA-Public Use
  Company Number: GB-TEVA-372610ISR

PATIENT
  Sex: Male

DRUGS (1)
  1. SODIUM CHLORIDE [Suspect]
     Indication: TRANSURETHRAL PROSTATECTOMY
     Dosage: 14L

REACTIONS (6)
  - Transurethral resection syndrome [Recovered/Resolved]
  - Vision blurred [Recovered/Resolved]
  - Visual field defect [Recovered/Resolved]
  - Fatigue [Recovered/Resolved]
  - Bradycardia [Recovered/Resolved]
  - Acute pulmonary oedema [Recovered/Resolved]
